FAERS Safety Report 18019654 (Version 1)
Quarter: 2020Q3

REPORT INFORMATION
  Report Type: Spontaneous
  Country: US (occurrence: US)
  Receive Date: 20200714
  Receipt Date: 20200714
  Transmission Date: 20201103
  Serious: Yes (Life-Threatening)
  Sender: FDA-Public Use
  Company Number: None

PATIENT
  Age: 66 Year
  Sex: Female
  Weight: 79.65 kg

DRUGS (5)
  1. JANUVIA [Suspect]
     Active Substance: SITAGLIPTIN PHOSPHATE
  2. METFORMIN [Suspect]
     Active Substance: METFORMIN HYDROCHLORIDE
  3. GLIPIZIDE. [Suspect]
     Active Substance: GLIPIZIDE
  4. VITAMIN SUPPLEMENTS [Concomitant]
     Active Substance: VITAMINS
  5. JARDIANCE [Suspect]
     Active Substance: EMPAGLIFLOZIN
     Indication: TYPE 2 DIABETES MELLITUS
     Dosage: ?          QUANTITY:1 TABLET(S);?
     Route: 048

REACTIONS (12)
  - Dizziness [None]
  - Blood glucose increased [None]
  - Pancreatic carcinoma [None]
  - Drug ineffective [None]
  - Abdominal discomfort [None]
  - Therapy cessation [None]
  - Product complaint [None]
  - Illness [None]
  - Adverse drug reaction [None]
  - Nausea [None]
  - Diet noncompliance [None]
  - Dyspnoea [None]

NARRATIVE: CASE EVENT DATE: 20200217
